FAERS Safety Report 4747915-2 (Version None)
Quarter: 2005Q3

REPORT INFORMATION
  Report Type: 
  Country: None (occurrence: None)
  Receive Date: 20050818
  Receipt Date: 20000908
  Transmission Date: 20060218
  Serious: Yes (Life-Threatening, Hospitalization)
  Sender: FDA-Public Use
  Company Number: PHFR2000GB01403

PATIENT
  Age: 15 Year
  Sex: Female

DRUGS (1)
  1. RITALIN [Suspect]
     Dosage: 10 OR 20MG, ONCE/SINGLE
     Route: 048
     Dates: start: 20000717, end: 20000717

REACTIONS (9)
  - ASTHENIA [None]
  - BLOOD PRESSURE INCREASED [None]
  - BODY TEMPERATURE INCREASED [None]
  - CYANOSIS [None]
  - FEELING HOT [None]
  - HYPERHIDROSIS [None]
  - PULSE PRESSURE DECREASED [None]
  - RESPIRATORY ARREST [None]
  - VISUAL DISTURBANCE [None]
